FAERS Safety Report 12355881 (Version 1)
Quarter: 2016Q2

REPORT INFORMATION
  Report Type: Spontaneous
  Country: US (occurrence: US)
  Receive Date: 20160511
  Receipt Date: 20160511
  Transmission Date: 20160815
  Serious: No
  Sender: FDA-Public Use
  Company Number: US-ASTRAZENECA-2016SE35692

PATIENT
  Sex: Male

DRUGS (1)
  1. ANASTROZOLE. [Suspect]
     Active Substance: ANASTROZOLE
     Indication: BLOOD OESTROGEN INCREASED
     Route: 048

REACTIONS (3)
  - Blood oestrogen increased [Unknown]
  - Blood testosterone increased [Unknown]
  - Off label use [Unknown]
